FAERS Safety Report 8437982-7 (Version None)
Quarter: 2012Q2

REPORT INFORMATION
  Report Type: 
  Country: None (occurrence: None)
  Receive Date: 20120614
  Receipt Date: 20120525
  Transmission Date: 20120825
  Serious: No
  Sender: FDA-Public Use
  Company Number: US-AMGEN-USASP2012033041

PATIENT
  Age: 91 Year
  Sex: Female

DRUGS (8)
  1. RANITIDINE [Concomitant]
  2. DIOVAN [Concomitant]
  3. ATENOLOL [Concomitant]
  4. INDAPAMIDE [Concomitant]
  5. AMLODIPINE [Concomitant]
  6. PROLIA [Suspect]
     Indication: OSTEOPOROSIS POSTMENOPAUSAL
     Dosage: 60 MG, Q6MO
     Dates: start: 20120501
  7. CALCIUM [Concomitant]
  8. FISH OIL [Concomitant]

REACTIONS (1)
  - BONE PAIN [None]
